FAERS Safety Report 19877894 (Version 1)
Quarter: 2021Q3

REPORT INFORMATION
  Report Type: Spontaneous
  Country: US (occurrence: US)
  Receive Date: 20210923
  Receipt Date: 20210923
  Transmission Date: 20211014
  Serious: No
  Sender: FDA-Public Use
  Company Number: US-INSUD PHARMA-2109US00989

PATIENT

DRUGS (1)
  1. SLYND [Suspect]
     Active Substance: DROSPIRENONE
     Indication: CONTRACEPTION
     Dosage: 1 DAILY
     Route: 048
     Dates: start: 20210401

REACTIONS (10)
  - Breast tenderness [Not Recovered/Not Resolved]
  - Behaviour disorder [Not Recovered/Not Resolved]
  - Dysmenorrhoea [Not Recovered/Not Resolved]
  - Weight increased [Not Recovered/Not Resolved]
  - Fatigue [Not Recovered/Not Resolved]
  - Increased appetite [Not Recovered/Not Resolved]
  - Depression [Not Recovered/Not Resolved]
  - Amenorrhoea [Recovered/Resolved]
  - Crying [Not Recovered/Not Resolved]
  - Intermenstrual bleeding [Recovered/Resolved]
